FAERS Safety Report 19046191 (Version 3)
Quarter: 2021Q2

REPORT INFORMATION
  Report Type: Spontaneous
  Country: JP (occurrence: JP)
  Receive Date: 20210323
  Receipt Date: 20210528
  Transmission Date: 20210717
  Serious: Yes (Other)
  Sender: FDA-Public Use
  Company Number: JP-AMGEN-JPNSP2021027002

PATIENT
  Age: 64 Year
  Sex: Female
  Weight: 46 kg

DRUGS (10)
  1. KLARICID [CLARITHROMYCIN] [Concomitant]
     Active Substance: CLARITHROMYCIN
     Indication: GINGIVITIS
     Dosage: 200 MILLIGRAM, BID
     Route: 048
     Dates: start: 20201017, end: 20201023
  2. EDIROL [Concomitant]
     Active Substance: ELDECALCITOL
     Indication: OSTEOPOROSIS
     Dosage: 0.75 MICROGRAM, QD
     Route: 048
     Dates: start: 20040927
  3. SODIUM RABEPRAZOLE [Concomitant]
     Active Substance: RABEPRAZOLE SODIUM
     Indication: GASTROOESOPHAGEAL REFLUX DISEASE
     Dosage: 10 MILLIGRAM, QD
     Route: 048
     Dates: start: 20060501
  4. CARERAM [Concomitant]
     Active Substance: IGURATIMOD
     Indication: RHEUMATOID ARTHRITIS
     Dosage: 25 MILLIGRAM, QD
     Route: 048
     Dates: start: 20180702
  5. PREDNISOLONE. [Concomitant]
     Active Substance: PREDNISOLONE
     Indication: RHEUMATOID ARTHRITIS
     Dosage: 2 MILLIGRAM, BID
     Route: 048
     Dates: start: 20040927
  6. PRALIA [Suspect]
     Active Substance: DENOSUMAB
     Indication: OSTEOPOROSIS
     Dosage: 60 MILLIGRAM, Q6MO
     Route: 058
     Dates: start: 20170930, end: 20200822
  7. BROTIZOLAM [Concomitant]
     Active Substance: BROTIZOLAM
     Indication: INSOMNIA
     Dosage: 0.25 MILLIGRAM, QD
     Route: 048
     Dates: start: 20040927
  8. METHOTREXATE. [Concomitant]
     Active Substance: METHOTREXATE
     Indication: RHEUMATOID ARTHRITIS
     Dosage: 6 MILLIGRAM, QWK
     Route: 048
     Dates: start: 20040927
  9. ISODINE [Concomitant]
     Active Substance: POVIDONE-IODINE
     Indication: STOMATITIS
     Dosage: 1 UNK, Q8H (OPTIMAL DOSE, TID)
     Route: 050
     Dates: start: 20201017, end: 20201212
  10. MOHRUS [Concomitant]
     Active Substance: KETOPROFEN
     Indication: RHEUMATOID ARTHRITIS
     Dosage: 30?60MG, QD
     Route: 050
     Dates: start: 20070323

REACTIONS (1)
  - Osteonecrosis of jaw [Not Recovered/Not Resolved]

NARRATIVE: CASE EVENT DATE: 202011
